FAERS Safety Report 6449863-9 (Version None)
Quarter: 2009Q4

REPORT INFORMATION
  Report Type: 
  Country: None (occurrence: None)
  Receive Date: 20091123
  Receipt Date: 20091116
  Transmission Date: 20100525
  Serious: Yes (Other)
  Sender: FDA-Public Use
  Company Number: GB-RANBAXY-2008RR-16150

PATIENT

DRUGS (5)
  1. SIMVASTATIN [Suspect]
     Indication: BLOOD CHOLESTEROL
     Dosage: 40 G, QD
     Route: 048
     Dates: start: 20080414, end: 20080416
  2. ACTONEL [Concomitant]
     Dosage: 35 MG, 1/WEEK
     Route: 065
  3. ADCAL-D3 [Concomitant]
     Dosage: 1500 MG, QD
     Route: 065
  4. LEVOTHYROXINE SODIUM [Concomitant]
     Dosage: 75 MG, UNK
     Route: 065
  5. RISEDRONATE SODIUM [Concomitant]

REACTIONS (2)
  - HEADACHE [None]
  - HYPERTENSION [None]
